FAERS Safety Report 7915609-8 (Version None)
Quarter: 2011Q4

REPORT INFORMATION
  Report Type: 
  Country: None (occurrence: None)
  Receive Date: 20111115
  Receipt Date: 20110726
  Transmission Date: 20120403
  Serious: No
  Sender: FDA-Public Use
  Company Number: US-BRISTOL-MYERS SQUIBB COMPANY-15854557

PATIENT

DRUGS (2)
  1. YERVOY [Suspect]
     Dosage: LAST TREATMENT ON 22JUN2011.
     Dates: start: 20110511
  2. STEROIDS [Concomitant]

REACTIONS (2)
  - PHARYNGEAL OEDEMA [None]
  - NEUTROPHIL COUNT INCREASED [None]
